FAERS Safety Report 7460073-9 (Version None)
Quarter: 2011Q2

REPORT INFORMATION
  Report Type: 
  Country: None (occurrence: None)
  Receive Date: 20110505
  Receipt Date: 20110426
  Transmission Date: 20111010
  Serious: Yes (Hospitalization)
  Sender: FDA-Public Use
  Company Number: PHFR2011GB02757

PATIENT
  Sex: Female

DRUGS (2)
  1. CLOZARIL [Suspect]
     Indication: SCHIZOPHRENIA
     Route: 048
     Dates: start: 19970317, end: 20110414
  2. CLOZARIL [Suspect]
     Dosage: 25 MG, BID
     Dates: start: 20110420

REACTIONS (3)
  - RENAL IMPAIRMENT [None]
  - CARDIAC DISORDER [None]
  - SYNCOPE [None]
